FAERS Safety Report 25522570 (Version 2)
Quarter: 2025Q3

REPORT INFORMATION
  Report Type: Report from Study
  Country: US (occurrence: US)
  Receive Date: 20250707
  Receipt Date: 20250709
  Transmission Date: 20251021
  Serious: Yes (Death, Hospitalization, Other)
  Sender: TAKEDA
  Company Number: US-TAKEDA-2022TUS079360

PATIENT
  Sex: Male
  Weight: 79 kg

DRUGS (49)
  1. HUMAN IMMUNOGLOBULIN G [Suspect]
     Active Substance: HUMAN IMMUNOGLOBULIN G
     Indication: Immunodeficiency common variable
     Dosage: 25 GRAM, Q4WEEKS
  2. EPINEPHRINE [Concomitant]
     Active Substance: EPINEPHRINE
  3. ACETAMINOPHEN [Concomitant]
     Active Substance: ACETAMINOPHEN
  4. ATORVASTATIN CALCIUM [Concomitant]
     Active Substance: ATORVASTATIN CALCIUM
  5. FLUTICASONE PROPIONATE [Concomitant]
     Active Substance: FLUTICASONE PROPIONATE
  6. DULERA [Concomitant]
     Active Substance: FORMOTEROL FUMARATE DIHYDRATE\MOMETASONE FUROATE
  7. CLONIDINE HYDROCHLORIDE [Concomitant]
     Active Substance: CLONIDINE HYDROCHLORIDE
  8. ARANESP [Concomitant]
     Active Substance: DARBEPOETIN ALFA
  9. TIZANIDINE HYDROCHLORIDE [Concomitant]
     Active Substance: TIZANIDINE HYDROCHLORIDE
  10. METFORMIN HYDROCHLORIDE [Concomitant]
     Active Substance: METFORMIN HYDROCHLORIDE
  11. SINGULAIR [Concomitant]
     Active Substance: MONTELUKAST SODIUM
  12. DOK [Concomitant]
     Active Substance: DOCUSATE SODIUM
  13. SODIUM CHLORIDE [Concomitant]
     Active Substance: SODIUM CHLORIDE
  14. ALBUTEROL SULFATE [Concomitant]
     Active Substance: ALBUTEROL SULFATE
  15. SYNTHROID [Concomitant]
     Active Substance: LEVOTHYROXINE SODIUM
  16. TOUJEO [Concomitant]
     Active Substance: INSULIN GLARGINE
  17. PRAZOSIN HYDROCHLORIDE [Concomitant]
     Active Substance: PRAZOSIN HYDROCHLORIDE
  18. POTASSIUM CHLORIDE [Concomitant]
     Active Substance: POTASSIUM CHLORIDE
  19. DIAZEPAM [Concomitant]
     Active Substance: DIAZEPAM
  20. OXYGEN [Concomitant]
     Active Substance: OXYGEN
  21. PREDNISONE [Concomitant]
     Active Substance: PREDNISONE
  22. HERBALS\SAW PALMETTO [Concomitant]
     Active Substance: HERBALS\SAW PALMETTO
  23. CHLORTHALIDONE [Concomitant]
     Active Substance: CHLORTHALIDONE
  24. IRON [Concomitant]
     Active Substance: IRON
  25. DIPHENHYDRAMINE [Concomitant]
     Active Substance: DIPHENHYDRAMINE
  26. Lmx [Concomitant]
  27. DIPHENHYDRAMINE HYDROCHLORIDE [Concomitant]
     Active Substance: DIPHENHYDRAMINE HYDROCHLORIDE
  28. VITAMIN D3 [Concomitant]
     Active Substance: CHOLECALCIFEROL
  29. HYDRALAZINE HCL [Concomitant]
     Active Substance: HYDRALAZINE HYDROCHLORIDE
  30. AMLODIPINE BESYLATE [Concomitant]
     Active Substance: AMLODIPINE BESYLATE
  31. FARXIGA [Concomitant]
     Active Substance: DAPAGLIFLOZIN PROPANEDIOL
  32. TRIAMCINOLONE ACETONIDE [Concomitant]
     Active Substance: TRIAMCINOLONE ACETONIDE
  33. ZYRTEC [Concomitant]
     Active Substance: CETIRIZINE HYDROCHLORIDE
  34. PRAZOSIN [Concomitant]
     Active Substance: PRAZOSIN
  35. CLONIDINE [Concomitant]
     Active Substance: CLONIDINE
  36. FLUTICASONE [Concomitant]
     Active Substance: FLUTICASONE
  37. HYDRALAZINE [Concomitant]
     Active Substance: HYDRALAZINE HYDROCHLORIDE
  38. AMLODIPINE [Concomitant]
     Active Substance: AMLODIPINE BESYLATE
  39. FERROUS BISGLYCINATE [Concomitant]
     Active Substance: FERROUS BISGLYCINATE
  40. TYLENOL [Concomitant]
     Active Substance: ACETAMINOPHEN
  41. EPINEPHRINE [Concomitant]
     Active Substance: EPINEPHRINE
  42. TIZANIDINE [Concomitant]
     Active Substance: TIZANIDINE
  43. METFORMIN [Concomitant]
     Active Substance: METFORMIN HYDROCHLORIDE
  44. TRIAMCINOLONE [Concomitant]
     Active Substance: TRIAMCINOLONE
  45. B12 [Concomitant]
  46. POTASSIUM [Concomitant]
     Active Substance: POTASSIUM
  47. BENADRYL ALLERGY [Concomitant]
     Active Substance: DIPHENHYDRAMINE HYDROCHLORIDE
  48. DOCUSATE SODIUM [Concomitant]
     Active Substance: DOCUSATE SODIUM
  49. HEPARIN [Concomitant]
     Active Substance: HEPARIN SODIUM

REACTIONS (26)
  - Death [Fatal]
  - Blood potassium increased [Unknown]
  - Thrombosis [Unknown]
  - Peripheral swelling [Unknown]
  - Blood glucose increased [Unknown]
  - Productive cough [Unknown]
  - Bone pain [Unknown]
  - Nasopharyngitis [Recovering/Resolving]
  - Bladder mass [Unknown]
  - Blood urine present [Unknown]
  - Gastroenteritis viral [Recovering/Resolving]
  - Fall [Unknown]
  - Abnormal faeces [Unknown]
  - Blood insulin abnormal [Unknown]
  - Poor venous access [Unknown]
  - Sinusitis [Unknown]
  - Upper respiratory tract infection [Unknown]
  - Rhinorrhoea [Recovering/Resolving]
  - Balance disorder [Unknown]
  - White blood cell count decreased [Unknown]
  - Oropharyngeal pain [Unknown]
  - Anaemia [Unknown]
  - Blood pressure increased [Unknown]
  - Oedema peripheral [Unknown]
  - Dyspnoea [Recovered/Resolved]
  - Fatigue [Unknown]
